FAERS Safety Report 14460208 (Version 1)
Quarter: 2018Q1

REPORT INFORMATION
  Report Type: Spontaneous
  Country: US (occurrence: US)
  Receive Date: 20180130
  Receipt Date: 20180130
  Transmission Date: 20180509
  Serious: Yes (Life-Threatening, Hospitalization, Disabling, Other)
  Sender: FDA-Public Use
  Company Number: None

PATIENT
  Age: 31 Year
  Sex: Male
  Weight: 157.5 kg

DRUGS (2)
  1. RISPERDAL CONSTA [Suspect]
     Active Substance: RISPERIDONE
     Indication: MENTAL DISORDER
  2. RISPERDAL [Suspect]
     Active Substance: RISPERIDONE
     Indication: MENTAL DISORDER

REACTIONS (10)
  - Loss of consciousness [None]
  - Nightmare [None]
  - Suicidal ideation [None]
  - Laceration [None]
  - Hallucination [None]
  - Deformity [None]
  - Anxiety [None]
  - Weight increased [None]
  - Skin striae [None]
  - Loss of personal independence in daily activities [None]

NARRATIVE: CASE EVENT DATE: 20080101
